FAERS Safety Report 7390041-7 (Version None)
Quarter: 2011Q2

REPORT INFORMATION
  Report Type: 
  Country: None (occurrence: None)
  Receive Date: 20110401
  Receipt Date: 20110323
  Transmission Date: 20111010
  Serious: Yes (Hospitalization)
  Sender: FDA-Public Use
  Company Number: FI-ASTRAZENECA-2011SE13149

PATIENT
  Age: 6027 Day
  Sex: Female

DRUGS (1)
  1. SEROQUEL XR [Suspect]
     Indication: CHILDHOOD PSYCHOSIS
     Route: 048
     Dates: start: 20101005, end: 20110221

REACTIONS (6)
  - LEUKOPENIA [None]
  - VIRAL INFECTION [None]
  - THROMBOCYTOPENIA [None]
  - THYROXINE FREE DECREASED [None]
  - NEUTROPENIA [None]
  - ANAEMIA [None]
